FAERS Safety Report 18832103 (Version 1)
Quarter: 2021Q1

REPORT INFORMATION
  Report Type: Spontaneous
  Country: CN (occurrence: CN)
  Receive Date: 20210203
  Receipt Date: 20210203
  Transmission Date: 20210419
  Serious: Yes (Hospitalization)
  Sender: FDA-Public Use
  Company Number: NVSC2021CN021234

PATIENT
  Age: 34 Year
  Sex: Male
  Weight: 64 kg

DRUGS (2)
  1. VOTALIN [Suspect]
     Active Substance: DICLOFENAC SODIUM
     Indication: ANALGESIC THERAPY
     Dosage: 25 MG, TID
     Route: 048
     Dates: start: 20201201, end: 20201203
  2. GALCULUS BOVIS AND METRONIDAZOLE [Suspect]
     Active Substance: BOS TAURUS GALLSTONE\METRONIDAZOLE
     Indication: TOOTHACHE
     Dosage: UNK
     Route: 065
     Dates: start: 20201201, end: 20201203

REACTIONS (1)
  - Acute generalised exanthematous pustulosis [Recovering/Resolving]

NARRATIVE: CASE EVENT DATE: 20201203
